FAERS Safety Report 12369478 (Version 1)
Quarter: 2016Q2

REPORT INFORMATION
  Report Type: Spontaneous
  Country: US (occurrence: None)
  Receive Date: 20160513
  Receipt Date: 20160513
  Transmission Date: 20160815
  Serious: No
  Sender: FDA-Public Use
  Company Number: None

PATIENT
  Age: 55 Year
  Sex: Female
  Weight: 99.79 kg

DRUGS (10)
  1. REXULTI [Suspect]
     Active Substance: BREXPIPRAZOLE
     Indication: MAJOR DEPRESSION
     Route: 048
     Dates: start: 20160301, end: 20160507
  2. TRINTELLIX [Concomitant]
     Active Substance: VORTIOXETINE HYDROBROMIDE
  3. METHOTREXATE [Concomitant]
     Active Substance: METHOTREXATE
  4. TRIAZOLAM. [Concomitant]
     Active Substance: TRIAZOLAM
  5. HUMALOG [Concomitant]
     Active Substance: INSULIN LISPRO
  6. FOLIC ACID. [Concomitant]
     Active Substance: FOLIC ACID
  7. LORSARTAN [Concomitant]
  8. SYNTHROID [Concomitant]
     Active Substance: LEVOTHYROXINE SODIUM
  9. LANTUS [Concomitant]
     Active Substance: INSULIN GLARGINE
  10. NABUMETONE. [Concomitant]
     Active Substance: NABUMETONE

REACTIONS (1)
  - Diabetes mellitus inadequate control [None]
